FAERS Safety Report 6227230-0 (Version None)
Quarter: 2009Q2

REPORT INFORMATION
  Report Type: 
  Country: None (occurrence: None)
  Receive Date: 20090612
  Receipt Date: 20090529
  Transmission Date: 20091009
  Serious: No
  Sender: FDA-Public Use
  Company Number: US-ABBOTT-09P-163-0576932-00

PATIENT
  Sex: Female
  Weight: 90.8 kg

DRUGS (5)
  1. HUMIRA [Suspect]
     Indication: RHEUMATOID ARTHRITIS
     Route: 058
     Dates: start: 20090507, end: 20090521
  2. CELEBREX [Concomitant]
     Indication: RHEUMATOID ARTHRITIS
  3. PREDNISONE [Concomitant]
     Indication: RHEUMATOID ARTHRITIS
  4. ATENOLOL [Concomitant]
     Indication: ANGINA PECTORIS
  5. NITROGLYCERIN [Concomitant]
     Indication: ANGINA PECTORIS
     Dosage: AS DIRECTED FOR ANGINA PAIN
     Route: 060

REACTIONS (3)
  - INJECTION SITE REACTION [None]
  - INJECTION SITE URTICARIA [None]
  - URTICARIA [None]
